FAERS Safety Report 7637850-4 (Version None)
Quarter: 2011Q3

REPORT INFORMATION
  Report Type: 
  Country: None (occurrence: None)
  Receive Date: 20110727
  Receipt Date: 20110714
  Transmission Date: 20111222
  Serious: Yes (Death, Other)
  Sender: FDA-Public Use
  Company Number: US-JNJFOC-2007333194

PATIENT
  Age: 4 Month
  Sex: Male
  Weight: 6.8 kg

DRUGS (5)
  1. ACETAMINOPHEN [Suspect]
     Route: 065
  2. PHENYLPROPANOLAMINE HCL [Suspect]
     Indication: PRODUCT USED FOR UNKNOWN INDICATION
     Dosage: DAILY DOSE TEXT: UNKNOWN
     Route: 065
  3. PSEUDOEPHEDRINE HCL [Suspect]
     Route: 065
  4. PSEUDOEPHEDRINE HCL [Suspect]
     Indication: PRODUCT USED FOR UNKNOWN INDICATION
     Dosage: DAILY DOSE TEXT: UNKNOWN
     Route: 065
  5. ACETAMINOPHEN [Suspect]
     Indication: PRODUCT USED FOR UNKNOWN INDICATION
     Dosage: DAILY DOSE TEXT: UNKNOWN
     Route: 065

REACTIONS (4)
  - BLOOD CULTURE POSITIVE [None]
  - STAPHYLOCOCCAL INFECTION [None]
  - SUDDEN INFANT DEATH SYNDROME [None]
  - DRUG LEVEL INCREASED [None]
